FAERS Safety Report 11360637 (Version 2)
Quarter: 2015Q4

REPORT INFORMATION
  Report Type: Spontaneous
  Country: US (occurrence: US)
  Receive Date: 20150810
  Receipt Date: 20151222
  Transmission Date: 20160304
  Serious: Yes (Hospitalization, Other)
  Sender: FDA-Public Use
  Company Number: US-ELI_LILLY_AND_COMPANY-US201508001259

PATIENT
  Age: 54 Year
  Sex: Male
  Weight: 102.4 kg

DRUGS (5)
  1. PRILOSEC [Concomitant]
     Active Substance: OMEPRAZOLE MAGNESIUM
     Dosage: 20 MG, QD
     Route: 065
  2. CIALIS [Concomitant]
     Active Substance: TADALAFIL
     Dosage: 20 MG, QD
     Route: 065
  3. AXIRON [Suspect]
     Active Substance: TESTOSTERONE
     Indication: BLOOD TESTOSTERONE DECREASED
     Dosage: UNK, UNKNOWN
     Route: 065
     Dates: start: 20120201, end: 20140101
  4. VIAGRA [Concomitant]
     Active Substance: SILDENAFIL CITRATE
  5. AMLODIPINE W/VALSARTAN [Concomitant]
     Active Substance: AMLODIPINE\VALSARTAN
     Dosage: 1 DF, QD
     Route: 065

REACTIONS (4)
  - Pleural effusion [Unknown]
  - Deep vein thrombosis [Unknown]
  - Pulmonary embolism [Unknown]
  - Lung consolidation [Unknown]

NARRATIVE: CASE EVENT DATE: 20131003
